FAERS Safety Report 9198420 (Version 1)
Quarter: 2013Q1

REPORT INFORMATION
  Report Type: Spontaneous
  Country: US (occurrence: None)
  Receive Date: 20130327
  Receipt Date: 20130327
  Transmission Date: 20140127
  Serious: Yes (Other)
  Sender: FDA-Public Use
  Company Number: None

PATIENT
  Age: 47 Year
  Sex: Female
  Weight: 129.28 kg

DRUGS (1)
  1. LEVOFLOXACIN [Suspect]
     Indication: SINUSITIS
     Dosage: 1 TABLET ONCE DAILY PO
     Route: 048
     Dates: start: 20130313, end: 20130321

REACTIONS (12)
  - Sinusitis [None]
  - Nasal ulcer [None]
  - Pain [None]
  - Arthralgia [None]
  - Gait disturbance [None]
  - Myalgia [None]
  - Tendonitis [None]
  - Drug hypersensitivity [None]
  - Oedema [None]
  - Oedema peripheral [None]
  - Urinary hesitation [None]
  - Chromaturia [None]
